FAERS Safety Report 23207480 (Version 2)
Quarter: 2023Q4

REPORT INFORMATION
  Report Type: Report from Study
  Country: US (occurrence: US)
  Receive Date: 20231120
  Receipt Date: 20231222
  Transmission Date: 20240110
  Serious: Yes (Hospitalization, Other)
  Sender: FDA-Public Use
  Company Number: US-ABBVIE-5503708

PATIENT
  Sex: Male

DRUGS (1)
  1. VENCLEXTA [Suspect]
     Active Substance: VENETOCLAX
     Indication: Chronic lymphocytic leukaemia
     Dosage: TAKE 3 TABLETS BY MOUTH ONCE DAILY WITH FOOD AND A FULL?GLASS OF WATER?FORM STRENGTH 100MG
     Route: 048

REACTIONS (10)
  - Nephrolithiasis [Unknown]
  - Liver injury [Unknown]
  - Pulmonary thrombosis [Unknown]
  - Pulmonary oedema [Unknown]
  - Myocardial injury [Unknown]
  - COVID-19 [Unknown]
  - Fall [Unknown]
  - Urosepsis [Recovered/Resolved]
  - Delirium [Unknown]
  - Hospitalisation [Recovered/Resolved]

NARRATIVE: CASE EVENT DATE: 20220101
